FAERS Safety Report 11684537 (Version 1)
Quarter: 2015Q4

REPORT INFORMATION
  Report Type: Spontaneous
  Country: PT (occurrence: PT)
  Receive Date: 20151029
  Receipt Date: 20151029
  Transmission Date: 20160304
  Serious: Yes (Other)
  Sender: FDA-Public Use
  Company Number: PT-B.I. PHARMACEUTICALS,INC./RIDGEFIELD-2015-BI-59607BY

PATIENT
  Age: 78 Year
  Sex: Male

DRUGS (2)
  1. TELMISARTAN + HYDROCHLOROTHIAZIDE [Suspect]
     Active Substance: HYDROCHLOROTHIAZIDE\TELMISARTAN
     Indication: PRODUCT USED FOR UNKNOWN INDICATION
     Dosage: DOSE PER APPLICATION AND DAILY DOSE: 80/12.5
     Route: 065
  2. METFORMIN HYDROCHLORIDE W/VILDAGLIPTIN [Suspect]
     Active Substance: METFORMIN HYDROCHLORIDE\VILDAGLIPTIN
     Indication: PRODUCT USED FOR UNKNOWN INDICATION
     Dosage: DOSE PER APPLICATION: 50/1000; DAILY DOSE: 100/2000
     Route: 065

REACTIONS (6)
  - Drug interaction [Unknown]
  - Hypotension [Unknown]
  - Dehydration [Unknown]
  - Lactic acidosis [Unknown]
  - Acute kidney injury [Unknown]
  - Abdominal pain [Unknown]
